FAERS Safety Report 5531700-8 (Version None)
Quarter: 2007Q4

REPORT INFORMATION
  Report Type: 
  Country: None (occurrence: None)
  Receive Date: 20071128
  Receipt Date: 20071119
  Transmission Date: 20080405
  Serious: Yes (Other)
  Sender: FDA-Public Use
  Company Number: E2090-00346-SPO-JP

PATIENT
  Age: 77 Year
  Sex: Male

DRUGS (3)
  1. ZONISAMIDE [Suspect]
     Indication: EPILEPSY
     Dosage: 400 MG, ORAL
     Route: 048
     Dates: start: 20071010, end: 20071102
  2. FAMOTIDINE [Concomitant]
  3. NORVASC [Concomitant]

REACTIONS (1)
  - TOXIC EPIDERMAL NECROLYSIS [None]
